FAERS Safety Report 5366212-8 (Version None)
Quarter: 2007Q2

REPORT INFORMATION
  Report Type: 
  Country: None (occurrence: None)
  Receive Date: 20070619
  Receipt Date: 20070604
  Transmission Date: 20071010
  Serious: Yes (Other)
  Sender: FDA-Public Use
  Company Number: 014104

PATIENT
  Age: 36 Year
  Sex: Female
  Weight: 71.7 kg

DRUGS (2)
  1. AVIANE-21 [Suspect]
     Indication: HORMONE LEVEL ABNORMAL
     Dosage: 1 TABLET QD ORAL
     Route: 048
     Dates: start: 20061001, end: 20061201
  2. AVIANE-21 [Suspect]
     Indication: ORAL CONTRACEPTION
     Dosage: 1 TABLET QD ORAL
     Route: 048
     Dates: start: 20061001, end: 20061201

REACTIONS (4)
  - DEPRESSION [None]
  - DRUG INEFFECTIVE [None]
  - PREMENSTRUAL SYNDROME [None]
  - SUICIDAL IDEATION [None]
